FAERS Safety Report 5189839-5 (Version None)
Quarter: 2006Q4

REPORT INFORMATION
  Report Type: 
  Country: None (occurrence: None)
  Receive Date: 20061218
  Receipt Date: 20061128
  Transmission Date: 20070319
  Serious: Yes (Other)
  Sender: FDA-Public Use
  Company Number: 8020483

PATIENT
  Age: 8 Month
  Sex: Male
  Weight: 7.22 kg

DRUGS (6)
  1. KEPPRA [Suspect]
     Indication: EPILEPSY
     Dosage: 2000 MG TRP
     Route: 064
  2. ZELNORM [Concomitant]
  3. PROZAC [Concomitant]
  4. TERBUTALINE SULFATE [Concomitant]
  5. NIFEDIPINE [Concomitant]
  6. ZOFRAN [Concomitant]

REACTIONS (5)
  - DEPRESSION [None]
  - DRUG EXPOSURE DURING PREGNANCY [None]
  - IRRITABLE BOWEL SYNDROME [None]
  - PREMATURE LABOUR [None]
  - VOMITING [None]
